FAERS Safety Report 8942442 (Version 1)
Quarter: 2012Q4

REPORT INFORMATION
  Report Type: Spontaneous
  Country: GB (occurrence: None)
  Receive Date: 20121121
  Receipt Date: 20121121
  Transmission Date: 20130627
  Serious: Yes (Hospitalization)
  Sender: FDA-Public Use
  Company Number: GER/UKI/12/0026685

PATIENT
  Age: 87 Year

DRUGS (4)
  1. TERBINAFINE [Suspect]
     Indication: FUNGAL INFECTION OF NAIL
     Route: 048
     Dates: start: 201207, end: 20121031
  2. DUTASTERIDE (DUTASTERIDE) [Concomitant]
  3. LOSARTAN (LOSARTAN) [Concomitant]
  4. QUININE BISULPHATE (QUININE BISULPHATE) [Concomitant]

REACTIONS (5)
  - Cholestasis [None]
  - Alanine aminotransferase increased [None]
  - Blood alkaline phosphatase increased [None]
  - Blood bilirubin increased [None]
  - Bile duct stenosis [None]
